FAERS Safety Report 22333633 (Version 1)
Quarter: 2023Q2

REPORT INFORMATION
  Report Type: Spontaneous
  Country: US (occurrence: None)
  Receive Date: 20230516
  Receipt Date: 20230516
  Transmission Date: 20230721
  Serious: No
  Sender: FDA-Public Use
  Company Number: None

PATIENT
  Age: 71 Year
  Sex: Female
  Weight: 88.45 kg

DRUGS (1)
  1. ORENCIA [Suspect]
     Active Substance: ABATACEPT
     Dosage: INJECT 125MG SUBCUTANEOUSLY ONCE A WEEK AS DIRECTED
     Dates: start: 202211

REACTIONS (2)
  - Therapy interrupted [None]
  - Illness [None]
